FAERS Safety Report 4338019-1 (Version None)
Quarter: 2004Q2

REPORT INFORMATION
  Report Type: 
  Country: None (occurrence: None)
  Receive Date: 20040408
  Receipt Date: 20040326
  Transmission Date: 20050107
  Serious: Yes (Hospitalization)
  Sender: FDA-Public Use
  Company Number: KDL048761

PATIENT
  Age: 45 Year
  Sex: Female

DRUGS (8)
  1. ATORVASTATIN CALCIUM [Suspect]
     Dosage: 10 MG, 1 IN 1 DAYS, PO
     Route: 048
  2. SENSIPAR [Suspect]
     Indication: HYPERPARATHYROIDISM SECONDARY
     Dosage: 60 MG, DAILY, PO
     Route: 048
     Dates: start: 20030521
  3. GEMFIBROZIL [Suspect]
     Dosage: 300 MG, 1 IN 1 DAYS
  4. ASPIRIN [Concomitant]
  5. CALCIUM CARBONATE [Concomitant]
  6. PANTOLOC [Concomitant]
  7. KETOROLAC [Concomitant]
  8. METOPROLOL [Concomitant]

REACTIONS (3)
  - BLOOD CALCIUM DECREASED [None]
  - GASTROINTESTINAL DISORDER [None]
  - PANCREATITIS ACUTE [None]
